FAERS Safety Report 6389580-7 (Version None)
Quarter: 2009Q4

REPORT INFORMATION
  Report Type: 
  Country: None (occurrence: None)
  Receive Date: 20091006
  Receipt Date: 20090930
  Transmission Date: 20100525
  Serious: Yes (Death)
  Sender: FDA-Public Use
  Company Number: US-ASTRAZENECA-2009SE06753

PATIENT
  Age: 31 Year
  Sex: Male

DRUGS (3)
  1. SEROQUEL [Suspect]
     Route: 048
  2. METHEDONE [Concomitant]
     Route: 065
  3. DARVECET [Concomitant]
     Route: 065

REACTIONS (2)
  - DRUG ABUSE [None]
  - SLEEP APNOEA SYNDROME [None]
